FAERS Safety Report 9044246 (Version 1)
Quarter: 2013Q1

REPORT INFORMATION
  Report Type: Spontaneous
  Country: US (occurrence: US)
  Receive Date: 20130131
  Receipt Date: 20130131
  Transmission Date: 20140127
  Serious: No
  Sender: FDA-Public Use
  Company Number: US-ABBOTT-12P-163-0984294-00

PATIENT
  Sex: Female
  Weight: 65.83 kg

DRUGS (9)
  1. HUMIRA [Suspect]
     Indication: RHEUMATOID ARTHRITIS
     Dates: start: 201208
  2. DICLOFENAC (NON-ABBOTT) [Concomitant]
     Indication: PAIN
  3. PREDNISONE (NON-ABBOTT) [Concomitant]
     Indication: RHEUMATOID ARTHRITIS
  4. METHOTREXATE (NON-ABBOTT) [Concomitant]
     Indication: RHEUMATOID ARTHRITIS
  5. ACTONEL [Concomitant]
     Indication: OSTEOPOROSIS
  6. HORMONE REPLACEMENT (NON-ABBOTT) [Concomitant]
     Indication: MENOPAUSE
  7. VITAMIN D (NON-ABBOTT) [Concomitant]
     Indication: VITAMIN SUPPLEMENTATION
  8. FOLIC ACID [Concomitant]
     Indication: RHEUMATOID ARTHRITIS
  9. CALCIUM (NON-ABBOTT) [Concomitant]
     Indication: MINERAL SUPPLEMENTATION

REACTIONS (2)
  - Injection site swelling [Recovered/Resolved]
  - Injection site erythema [Not Recovered/Not Resolved]
